FAERS Safety Report 13798603 (Version 2)
Quarter: 2017Q3

REPORT INFORMATION
  Report Type: Spontaneous
  Country: IL (occurrence: IL)
  Receive Date: 20170727
  Receipt Date: 20170811
  Transmission Date: 20171127
  Serious: Yes (Death, Hospitalization, Other)
  Sender: FDA-Public Use
  Company Number: IL-009507513-1707ISR010735

PATIENT
  Sex: Male

DRUGS (2)
  1. VANCOMYCIN [Concomitant]
     Active Substance: VANCOMYCIN
     Indication: PRODUCT USED FOR UNKNOWN INDICATION
     Dosage: UNK UNK, UNKNOWN FREQ. (4 COURSES)
     Route: 048
  2. FIDAXOMICIN [Suspect]
     Active Substance: FIDAXOMICIN
     Indication: DIARRHOEA
     Dosage: UNK UNK, UNKNOWN FREQ.
     Route: 048
     Dates: start: 201706

REACTIONS (2)
  - Drug ineffective [Unknown]
  - Septic shock [Fatal]

NARRATIVE: CASE EVENT DATE: 201707
